FAERS Safety Report 4952637-9 (Version None)
Quarter: 2006Q1

REPORT INFORMATION
  Report Type: 
  Country: None (occurrence: None)
  Receive Date: 20060317
  Receipt Date: 20040623
  Transmission Date: 20060701
  Serious: Yes (Hospitalization, Other)
  Sender: FDA-Public Use
  Company Number: HQWYE249629JUL03

PATIENT
  Age: 69 Year
  Sex: Female
  Weight: 64.92 kg

DRUGS (2)
  1. MYLOTARG [Suspect]
     Indication: ACUTE MYELOID LEUKAEMIA
     Dosage: 15 MG 1X PER 1 DAY INTRAVENOUS
     Route: 042
     Dates: start: 20030714, end: 20030714
  2. MYLOTARG [Suspect]
     Indication: ACUTE MYELOID LEUKAEMIA
     Dosage: 15 MG 1X PER 1 DAY INTRAVENOUS
     Route: 042
     Dates: start: 20030726, end: 20030726

REACTIONS (15)
  - ANAPHYLACTIC REACTION [None]
  - BLOOD UREA INCREASED [None]
  - FEBRILE NEUTROPENIA [None]
  - GALLBLADDER POLYP [None]
  - GASTROINTESTINAL HAEMORRHAGE [None]
  - HEPATIC STEATOSIS [None]
  - HEPATOTOXICITY [None]
  - INFECTION [None]
  - INFUSION RELATED REACTION [None]
  - PAIN [None]
  - PLATELET COUNT DECREASED [None]
  - RENAL CYST [None]
  - SPLENOMEGALY [None]
  - WEIGHT INCREASED [None]
  - WHITE BLOOD CELL COUNT DECREASED [None]
